FAERS Safety Report 10888217 (Version 1)
Quarter: 2015Q1

REPORT INFORMATION
  Report Type: Spontaneous
  Country: FR (occurrence: FR)
  Receive Date: 20150304
  Receipt Date: 20150304
  Transmission Date: 20150721
  Serious: Yes (Other)
  Sender: FDA-Public Use
  Company Number: PHHY2015FR024214

PATIENT
  Sex: Female

DRUGS (1)
  1. FTY720 [Suspect]
     Active Substance: FINGOLIMOD HYDROCHLORIDE
     Indication: MULTIPLE SCLEROSIS
     Dosage: UNK
     Route: 065

REACTIONS (5)
  - Abortion spontaneous [Unknown]
  - Multiple sclerosis relapse [Unknown]
  - Central nervous system lesion [Unknown]
  - Rebound effect [Unknown]
  - Maternal exposure during pregnancy [Unknown]
